FAERS Safety Report 13069877 (Version 2)
Quarter: 2017Q1

REPORT INFORMATION
  Report Type: Report from Study
  Country: BR (occurrence: BR)
  Receive Date: 20161228
  Receipt Date: 20170324
  Transmission Date: 20170428
  Serious: Yes (Life-Threatening, Hospitalization, Other)
  Sender: FDA-Public Use
  Company Number: BR-ALEXION-A201610321

PATIENT
  Age: 65 Year
  Sex: Male

DRUGS (2)
  1. SOLIRIS [Suspect]
     Active Substance: ECULIZUMAB
     Indication: PAROXYSMAL NOCTURNAL HAEMOGLOBINURIA
     Dosage: 600 MG, QW
     Route: 042
     Dates: start: 20120420, end: 20120511
  2. SOLIRIS [Suspect]
     Active Substance: ECULIZUMAB
     Dosage: 900 MG, Q2W
     Route: 042
     Dates: start: 20120518

REACTIONS (16)
  - Feeling abnormal [Unknown]
  - Urinary tract infection [Recovering/Resolving]
  - Haemolysis [Unknown]
  - Haemoglobin decreased [Unknown]
  - Blood creatinine increased [Not Recovered/Not Resolved]
  - Anaemia [Not Recovered/Not Resolved]
  - Infection [Not Recovered/Not Resolved]
  - Abdominal pain upper [Unknown]
  - Influenza [Recovering/Resolving]
  - Nausea [Recovering/Resolving]
  - Renal disorder [Unknown]
  - Vomiting [Recovering/Resolving]
  - Blood urea increased [Not Recovered/Not Resolved]
  - Nasopharyngitis [Unknown]
  - Obstructive uropathy [Unknown]
  - Oropharyngeal pain [Recovering/Resolving]

NARRATIVE: CASE EVENT DATE: 20161211
